FAERS Safety Report 6147247-4 (Version None)
Quarter: 2009Q2

REPORT INFORMATION
  Report Type: 
  Country: None (occurrence: None)
  Receive Date: 20090408
  Receipt Date: 20090330
  Transmission Date: 20091009
  Serious: Yes (Other)
  Sender: FDA-Public Use
  Company Number: US-ELI_LILLY_AND_COMPANY-US200903007610

PATIENT
  Sex: Female

DRUGS (2)
  1. EVISTA [Suspect]
     Dosage: UNK, UNKNOWN
     Route: 065
     Dates: start: 20060101
  2. MIACALCIN [Concomitant]
     Dosage: UNK, DAILY (1/D)
     Route: 045
     Dates: start: 20060101

REACTIONS (1)
  - RESORPTION BONE INCREASED [None]
